FAERS Safety Report 7078354-X (Version None)
Quarter: 2010Q4

REPORT INFORMATION
  Report Type: 
  Country: None (occurrence: None)
  Receive Date: 20101102
  Receipt Date: 20100928
  Transmission Date: 20110411
  Serious: Yes (Hospitalization, Other)
  Sender: FDA-Public Use
  Company Number: US-BAYER-201027525NA

PATIENT
  Age: 40 Year
  Sex: Female
  Weight: 79 kg

DRUGS (9)
  1. YAZ [Suspect]
     Indication: CONTRACEPTION
     Route: 048
     Dates: start: 20060601, end: 20070401
  2. YASMIN [Suspect]
     Indication: PRODUCT USED FOR UNKNOWN INDICATION
     Route: 048
     Dates: start: 20060601
  3. OCELLA [Suspect]
     Indication: PRODUCT USED FOR UNKNOWN INDICATION
     Route: 048
     Dates: start: 20060601
  4. ANCEF [Concomitant]
     Indication: CELLULITIS
     Route: 042
  5. KEFLEX [Concomitant]
     Indication: CELLULITIS
  6. VIBRAMYCIN [Concomitant]
     Indication: CELLULITIS
     Dates: start: 20070403
  7. MOTRIN [Concomitant]
     Indication: PAIN
     Dates: start: 20070403
  8. ZOLPIDEM [Concomitant]
     Indication: INSOMNIA
     Route: 048
  9. ACETAMINOPHEN [Concomitant]
     Indication: PAIN
     Route: 048
     Dates: start: 20070404

REACTIONS (4)
  - DEEP VEIN THROMBOSIS [None]
  - OEDEMA PERIPHERAL [None]
  - PAIN IN EXTREMITY [None]
  - RASH [None]
